FAERS Safety Report 7402146-2 (Version None)
Quarter: 2011Q2

REPORT INFORMATION
  Report Type: 
  Country: None (occurrence: None)
  Receive Date: 20110408
  Receipt Date: 20110207
  Transmission Date: 20111010
  Serious: Yes (Hospitalization)
  Sender: FDA-Public Use
  Company Number: US-BAYER-201041068NA

PATIENT
  Age: 17 Year
  Sex: Female
  Weight: 83 kg

DRUGS (14)
  1. DILAUDID [Concomitant]
     Indication: PAIN
     Route: 042
     Dates: start: 20080715
  2. PERCOCET [Concomitant]
     Indication: PAIN
     Route: 048
  3. PEPCID [Concomitant]
     Route: 048
     Dates: start: 20080716
  4. MORPHINE SULFATE [Concomitant]
     Route: 042
  5. OXYCET [Concomitant]
     Route: 048
  6. YAZ [Suspect]
     Indication: CONTRACEPTION
     Route: 048
     Dates: start: 20080601, end: 20090815
  7. BENADRYL [Concomitant]
     Indication: PRURITUS
     Route: 042
     Dates: start: 20080715
  8. DEMEROL [Concomitant]
     Route: 042
     Dates: start: 20080716
  9. YASMIN [Suspect]
     Indication: CONTRACEPTION
     Route: 048
     Dates: start: 20080601, end: 20090801
  10. MORPHINE SULFATE [Concomitant]
     Indication: PAIN
     Route: 042
     Dates: start: 20080716
  11. MORPHINE SULFATE [Concomitant]
     Route: 042
  12. PEPCID [Concomitant]
     Route: 048
     Dates: start: 20080716
  13. ZOSYN [Concomitant]
     Route: 042
     Dates: start: 20080715
  14. IBUPROFEN (ADVIL) [Concomitant]

REACTIONS (11)
  - BILE DUCT OBSTRUCTION [None]
  - VOMITING [None]
  - CHOLELITHIASIS [None]
  - CHOLECYSTITIS [None]
  - DIZZINESS [None]
  - PANCREATITIS [None]
  - ABDOMINAL PAIN UPPER [None]
  - LIVER FUNCTION TEST ABNORMAL [None]
  - ESCHERICHIA URINARY TRACT INFECTION [None]
  - GASTROINTESTINAL DISORDER [None]
  - CYSTITIS [None]
